FAERS Safety Report 10868664 (Version 1)
Quarter: 2015Q1

REPORT INFORMATION
  Report Type: Report from Study
  Country: KR (occurrence: KR)
  Receive Date: 20150225
  Receipt Date: 20150225
  Transmission Date: 20150721
  Serious: Yes (Death, Hospitalization)
  Sender: FDA-Public Use
  Company Number: KR-EISAI MEDICAL RESEARCH-EC-2015-003600

PATIENT
  Age: 52 Year
  Sex: Male
  Weight: 48.9 kg

DRUGS (14)
  1. MAG-O [Concomitant]
  2. DEXAMETHASONE. [Concomitant]
     Active Substance: DEXAMETHASONE
  3. PEIDINE [Concomitant]
  4. TARGIN CR [Concomitant]
     Active Substance: NALOXONE HYDROCHLORIDE\OXYCODONE HYDROCHLORIDE
  5. LIDOTOP PATCH [Concomitant]
  6. LENVATINIB [Suspect]
     Active Substance: LENVATINIB
     Indication: HEPATOCELLULAR CARCINOMA
     Route: 048
     Dates: start: 20141121, end: 20150201
  7. ENCOVER SOLN [Concomitant]
  8. TRAMADOL [Concomitant]
     Active Substance: TRAMADOL
  9. FENTAMAX MAT [Concomitant]
  10. IRCODON [Concomitant]
  11. LYRICA [Concomitant]
     Active Substance: PREGABALIN
  12. MEGACE SUSP [Concomitant]
  13. FAMOTIDINE. [Concomitant]
     Active Substance: FAMOTIDINE
  14. SUSPEN ER [Concomitant]

REACTIONS (2)
  - Pneumothorax [Not Recovered/Not Resolved]
  - Hepatic failure [Fatal]

NARRATIVE: CASE EVENT DATE: 20150201
